FAERS Safety Report 9200045 (Version 1)
Quarter: 2013Q1

REPORT INFORMATION
  Report Type: Report from Study
  Country: US (occurrence: US)
  Receive Date: 20130329
  Receipt Date: 20130329
  Transmission Date: 20140127
  Serious: Yes (Other)
  Sender: FDA-Public Use
  Company Number: US-ROCHE-1206899

PATIENT
  Age: 59 Year
  Sex: Male

DRUGS (9)
  1. PEG-INTERFERON ALFA 2A [Suspect]
     Indication: CHRONIC HEPATITIS C
     Dosage: DATE OF LAST DOSE PRIOR TO SAE 04/FEB/2013
     Route: 058
     Dates: start: 20120827
  2. RIBAVIRIN [Suspect]
     Indication: CHRONIC HEPATITIS C
     Dosage: DATE OF LAST DOSE PRIOR TO SAE 10/FEB/2013
     Route: 048
     Dates: start: 20120827
  3. TELAPREVIR [Suspect]
     Indication: CHRONIC HEPATITIS C
     Dosage: DATE OF LAST DOSE PRIOR TO SAE 18/NOV/2012
     Route: 048
     Dates: start: 20120827
  4. FOLIC ACID [Concomitant]
  5. LISINOPRIL/HCTZ [Concomitant]
  6. GABAPENTIN [Concomitant]
  7. ZANTAC [Concomitant]
  8. DILTIAZEM HCL [Concomitant]
  9. NORTRIPTYLINE HCL [Concomitant]

REACTIONS (2)
  - Syncope [Recovered/Resolved]
  - Convulsion [Recovered/Resolved]
